FAERS Safety Report 15991805 (Version 2)
Quarter: 2019Q1

REPORT INFORMATION
  Report Type: Spontaneous
  Country: US (occurrence: US)
  Receive Date: 20190221
  Receipt Date: 20190222
  Transmission Date: 20190418
  Serious: Yes (Other)
  Sender: FDA-Public Use
  Company Number: US-TEVA-2019-US-1012875

PATIENT
  Sex: Male

DRUGS (6)
  1. TEVA DOXORUBICIN [Suspect]
     Active Substance: DOXORUBICIN
     Dosage: DOSE STRENGTH: 2 MG/ML, 200 MG
     Route: 065
     Dates: start: 20141017
  2. PFIZER DOXORUBICIN [Suspect]
     Active Substance: DOXORUBICIN
     Indication: BREAST CANCER
     Route: 065
     Dates: start: 20140815
  3. TAMOXIFEN CITRATE TEVA [Suspect]
     Active Substance: TAMOXIFEN CITRATE
     Indication: BREAST CANCER
     Dates: start: 201505, end: 201801
  4. BAXTER CYCLOPHOSPHAMIDE [Suspect]
     Active Substance: CYCLOPHOSPHAMIDE
     Indication: BREAST CANCER
     Route: 065
     Dates: start: 20140815
  5. TEVA DOXORUBICIN [Suspect]
     Active Substance: DOXORUBICIN
     Indication: BREAST CANCER
     Dosage: DOSE STRENGTH: 2 MG/ML, 200 MG
     Route: 065
     Dates: start: 20140926
  6. TAXOL [Suspect]
     Active Substance: PACLITAXEL
     Indication: BREAST CANCER
     Dates: start: 201411, end: 201502

REACTIONS (7)
  - Brain injury [Unknown]
  - Confusional state [Unknown]
  - Impaired reasoning [Unknown]
  - Memory impairment [Unknown]
  - Mood swings [Unknown]
  - Grip strength decreased [Unknown]
  - Breast cancer stage IV [Unknown]
